FAERS Safety Report 25329574 (Version 1)
Quarter: 2025Q2

REPORT INFORMATION
  Report Type: Report from Study
  Country: CA (occurrence: CA)
  Receive Date: 20250519
  Receipt Date: 20250519
  Transmission Date: 20250717
  Serious: Yes (Disabling)
  Sender: TAKEDA
  Company Number: CA-TAKEDA-2025TUS037894

PATIENT
  Sex: Male

DRUGS (8)
  1. VEDOLIZUMAB [Suspect]
     Active Substance: VEDOLIZUMAB
     Indication: Crohn^s disease
  2. VEDOLIZUMAB [Suspect]
     Active Substance: VEDOLIZUMAB
  3. RINVOQ [Concomitant]
     Active Substance: UPADACITINIB
     Dosage: 30 MILLIGRAM, QD
     Dates: start: 202310
  4. TRANDOLAPRIL [Concomitant]
     Active Substance: TRANDOLAPRIL
  5. BISOPROLOL [Concomitant]
     Active Substance: BISOPROLOL
  6. GLICLAZIDE [Concomitant]
     Active Substance: GLICLAZIDE
  7. JARDIANCE [Concomitant]
     Active Substance: EMPAGLIFLOZIN
  8. PROLIA [Concomitant]
     Active Substance: DENOSUMAB
     Dosage: UNK UNK, Q6MONTHS

REACTIONS (1)
  - Arthritis [Not Recovered/Not Resolved]
